FAERS Safety Report 9392999 (Version 2)
Quarter: 2013Q3

REPORT INFORMATION
  Report Type: Spontaneous
  Country: US (occurrence: US)
  Receive Date: 20130710
  Receipt Date: 20130813
  Transmission Date: 20140515
  Serious: Yes (Other)
  Sender: FDA-Public Use
  Company Number: PHEH2013US014511

PATIENT
  Sex: Female

DRUGS (6)
  1. DIOVAN [Suspect]
     Dosage: 1 DF,(160 MG) PER DAY
  2. METFORMIN [Concomitant]
  3. INSULIN [Concomitant]
     Dosage: 30 MG, UNK
  4. ASPIRIN [Concomitant]
     Dosage: UNK UKN, UNK
  5. ASPIRIN [Concomitant]
     Dosage: UNK
  6. LASIX [Concomitant]
     Dosage: UNK UKN, UNK

REACTIONS (5)
  - Cerebrovascular accident [Unknown]
  - Diabetes mellitus [Unknown]
  - Abasia [Unknown]
  - Mental impairment [Unknown]
  - Hypertension [Unknown]
